FAERS Safety Report 25734101 (Version 3)
Quarter: 2025Q4

REPORT INFORMATION
  Report Type: Spontaneous
  Country: SG (occurrence: SG)
  Receive Date: 20250828
  Receipt Date: 20251003
  Transmission Date: 20260119
  Serious: No
  Sender: BECTON DICKINSON
  Company Number: SG-BECTON DICKINSON-SG-BD-25-000415

PATIENT

DRUGS (1)
  1. CHLORAPREP WITH TINT [Suspect]
     Active Substance: CHLORHEXIDINE GLUCONATE\ISOPROPYL ALCOHOL
     Indication: Product used for unknown indication
     Dosage: N/A
     Route: 065

REACTIONS (1)
  - Device defective [Unknown]
